FAERS Safety Report 9271400 (Version 1)
Quarter: 2013Q2

REPORT INFORMATION
  Report Type: Spontaneous
  Country: US (occurrence: US)
  Receive Date: 20130506
  Receipt Date: 20130506
  Transmission Date: 20140414
  Serious: No
  Sender: FDA-Public Use
  Company Number: US-PFIZER INC-2013138839

PATIENT
  Age: 52 Year
  Sex: Female
  Weight: 61.22 kg

DRUGS (4)
  1. LYRICA [Suspect]
     Indication: FIBROMYALGIA
     Dosage: 25 MG, 4X/DAY
     Dates: start: 2007
  2. PAMELOR [Concomitant]
     Indication: FIBROMYALGIA
     Dosage: UNK
  3. TOPAMAX [Concomitant]
     Indication: MIGRAINE
     Dosage: 25 MG, 3X/DAY
  4. SOMA [Concomitant]
     Dosage: 350 MG, AS NEEDED

REACTIONS (1)
  - Weight increased [Unknown]
